FAERS Safety Report 21125785 (Version 1)
Quarter: 2022Q3

REPORT INFORMATION
  Report Type: Spontaneous
  Country: US (occurrence: US)
  Receive Date: 20220725
  Receipt Date: 20220725
  Transmission Date: 20221026
  Serious: Yes (Other)
  Sender: FDA-Public Use
  Company Number: US-GSK-US2022107737

PATIENT

DRUGS (2)
  1. BREO ELLIPTA [Suspect]
     Active Substance: FLUTICASONE FUROATE\VILANTEROL TRIFENATATE
     Indication: Dyspnoea
     Dosage: 1 PUFF(S), QD 100/25MCG
     Route: 055
     Dates: start: 20200228
  2. ELIQUIS [Concomitant]
     Active Substance: APIXABAN
     Indication: Unknown schedule of product administration
     Dosage: UNKNOWN

REACTIONS (2)
  - Femur fracture [Unknown]
  - Product use in unapproved indication [Unknown]

NARRATIVE: CASE EVENT DATE: 20210701
